FAERS Safety Report 4381923-9 (Version None)
Quarter: 2004Q2

REPORT INFORMATION
  Report Type: 
  Country: None (occurrence: None)
  Receive Date: 20040615
  Receipt Date: 20040602
  Transmission Date: 20050107
  Serious: No
  Sender: FDA-Public Use
  Company Number: FR-SHR-03-008794

PATIENT
  Age: 42 Year
  Sex: Female
  Weight: 60 kg

DRUGS (1)
  1. MIRENA [Suspect]
     Indication: CONTRACEPTION
     Dosage: 20 UG,CONT, INTRA-UTERINE
     Route: 015
     Dates: start: 20020308

REACTIONS (2)
  - MENINGIOMA BENIGN [None]
  - NEOPLASM RECURRENCE [None]
